FAERS Safety Report 15183171 (Version 2)
Quarter: 2018Q4

REPORT INFORMATION
  Report Type: Spontaneous
  Country: IE (occurrence: IE)
  Receive Date: 20180723
  Receipt Date: 20180815
  Transmission Date: 20190204
  Serious: Yes (Life-Threatening, Hospitalization)
  Sender: FDA-Public Use
  Company Number: IE-TEVA-2018-IE-930430

PATIENT
  Age: 70 Year
  Sex: Male

DRUGS (1)
  1. CO-AMOXICLAV FOR INJECTION (AMOXICILLIN\CLAVULANIC ACID) [Suspect]
     Active Substance: AMOXICILLIN\CLAVULANIC ACID
     Indication: RESPIRATORY TRACT INFECTION
     Dosage: 2 DOSES (1 DOSE PREVIOUSLY-NO REACTION, 2ND DOSE IN ED-REACTION AT 2ND DOSE)
     Route: 042
     Dates: start: 20180624

REACTIONS (4)
  - Anaphylactic reaction [Recovered/Resolved]
  - Dyspnoea [Recovered/Resolved]
  - Oxygen saturation decreased [Recovered/Resolved]
  - Bradycardia [Recovered/Resolved]

NARRATIVE: CASE EVENT DATE: 20180624
